FAERS Safety Report 6898848-7 (Version None)
Quarter: 2010Q3

REPORT INFORMATION
  Report Type: 
  Country: None (occurrence: None)
  Receive Date: 20100802
  Receipt Date: 20071219
  Transmission Date: 20110219
  Serious: No
  Sender: FDA-Public Use
  Company Number: US-PFIZER INC-2007091346

PATIENT
  Sex: Male
  Weight: 79.4 kg

DRUGS (2)
  1. LYRICA [Suspect]
     Indication: NEUROPATHY PERIPHERAL
     Dosage: TID: EVERY DAY
     Route: 048
     Dates: start: 20070825, end: 20070906
  2. LYRICA [Suspect]

REACTIONS (2)
  - BLISTER [None]
  - URTICARIA [None]
